FAERS Safety Report 6086011-1 (Version None)
Quarter: 2009Q1

REPORT INFORMATION
  Report Type: 
  Country: None (occurrence: None)
  Receive Date: 20090220
  Receipt Date: 20090116
  Transmission Date: 20090719
  Serious: Yes (Death)
  Sender: FDA-Public Use
  Company Number: US-BAYER-200910147GPV

PATIENT
  Age: 70 Year
  Sex: Female

DRUGS (3)
  1. NIFEDIPINE [Suspect]
     Indication: DRUG USE FOR UNKNOWN INDICATION
     Route: 048
  2. LOSARTAN [Suspect]
     Indication: DRUG USE FOR UNKNOWN INDICATION
     Route: 048
  3. GEMFIBROZIL [Suspect]
     Indication: DRUG USE FOR UNKNOWN INDICATION
     Route: 048

REACTIONS (1)
  - DRUG TOXICITY [None]
